FAERS Safety Report 4421789-1 (Version None)
Quarter: 2004Q3

REPORT INFORMATION
  Report Type: 
  Country: None (occurrence: None)
  Receive Date: 20040806
  Receipt Date: 20040716
  Transmission Date: 20050211
  Serious: Yes (Hospitalization, Other)
  Sender: FDA-Public Use
  Company Number: US_020180265

PATIENT
  Age: 31 Year
  Sex: Female
  Weight: 89 kg

DRUGS (8)
  1. HUMALOG [Suspect]
     Indication: DIABETES MELLITUS
     Dates: end: 20040716
  2. HUMULIN N [Suspect]
     Indication: DIABETES MELLITUS
     Dosage: 65 U DAY
     Dates: start: 19830101
  3. OXYCODONE HCL [Concomitant]
  4. SKELAXIN [Concomitant]
  5. LASIX [Concomitant]
  6. NORVASC [Concomitant]
  7. NOVOLIN(INSULIN HUMAN INJECTION, ISOPHANE) [Concomitant]
  8. MEVACOR [Concomitant]

REACTIONS (24)
  - APNOEA [None]
  - BLOOD GLUCOSE DECREASED [None]
  - BLOOD GLUCOSE INCREASED [None]
  - CHEST PAIN [None]
  - DRUG HYPERSENSITIVITY [None]
  - GANGRENE [None]
  - HEPATOCELLULAR DAMAGE [None]
  - INJURY [None]
  - INSULIN RESISTANCE [None]
  - LEG AMPUTATION [None]
  - NERVE INJURY [None]
  - NEUROPATHY [None]
  - PAIN [None]
  - PAIN IN EXTREMITY [None]
  - PAIN IN JAW [None]
  - PERSONALITY CHANGE [None]
  - PHARMACEUTICAL PRODUCT COMPLAINT [None]
  - RHEUMATOID ARTHRITIS [None]
  - ROAD TRAFFIC ACCIDENT [None]
  - THERAPY NON-RESPONDER [None]
  - TREMOR [None]
  - ULCER [None]
  - UPPER LIMB FRACTURE [None]
  - WEIGHT INCREASED [None]
